FAERS Safety Report 9557415 (Version 1)
Quarter: 2013Q3

REPORT INFORMATION
  Report Type: Spontaneous
  Country: DK (occurrence: None)
  Receive Date: 20130924
  Receipt Date: 20130924
  Transmission Date: 20140515
  Serious: Yes (Hospitalization)
  Sender: FDA-Public Use
  Company Number: DK-20130005

PATIENT
  Age: 66 Year
  Sex: Male

DRUGS (4)
  1. DOTAREM [Suspect]
     Indication: NUCLEAR MAGNETIC RESONANCE IMAGING BRAIN
     Dosage: ORAL.
     Route: 042
     Dates: start: 20130729
  2. VIBRADOX [Suspect]
     Indication: INFECTION
     Route: 048
  3. FURIX [Suspect]
     Indication: HYPERTENSION
     Route: 048
     Dates: start: 20130711
  4. LOSARTAN [Suspect]
     Indication: HYPERTENSION
     Dates: start: 20130721

REACTIONS (2)
  - Stevens-Johnson syndrome [None]
  - Toxic epidermal necrolysis [None]
